FAERS Safety Report 8593554-5 (Version None)
Quarter: 2012Q3

REPORT INFORMATION
  Report Type: 
  Country: None (occurrence: None)
  Receive Date: 20120814
  Receipt Date: 20120806
  Transmission Date: 20120928
  Serious: Yes (Hospitalization)
  Sender: FDA-Public Use
  Company Number: US-JNJFOC-20111006851

PATIENT
  Sex: Male
  Weight: 97 kg

DRUGS (12)
  1. MESALAMINE [Concomitant]
  2. ZOFRAN [Concomitant]
  3. CLINDAMYCIN [Suspect]
     Indication: PRODUCT USED FOR UNKNOWN INDICATION
     Route: 048
  4. INFLIXIMAB, RECOMBINANT [Suspect]
     Indication: INFLAMMATORY BOWEL DISEASE
     Route: 042
     Dates: start: 20110902
  5. AMITRIPTYLINE HCL [Concomitant]
  6. GABAPENTIN [Concomitant]
  7. PAMIDRONATE DISODIUM [Concomitant]
  8. VITAMIN [Concomitant]
  9. DIAZEPAM [Concomitant]
  10. ANTIBIOTICS [Concomitant]
     Indication: INFLAMMATORY BOWEL DISEASE
  11. MELATONIN [Concomitant]
  12. FLONASE [Concomitant]

REACTIONS (1)
  - INFLAMMATORY BOWEL DISEASE [None]
